FAERS Safety Report 7641488-2 (Version None)
Quarter: 2011Q3

REPORT INFORMATION
  Report Type: 
  Country: None (occurrence: None)
  Receive Date: 20110728
  Receipt Date: 20110719
  Transmission Date: 20111222
  Serious: Yes (Hospitalization, Other)
  Sender: FDA-Public Use
  Company Number: ES-MILLENNIUM PHARMACEUTICALS, INC.-2011-01840

PATIENT

DRUGS (3)
  1. DEXAMETHASONE [Concomitant]
     Indication: MULTIPLE MYELOMA
     Dosage: 20 MG, UNK
  2. VELCADE [Suspect]
     Dosage: 1.84 MG, CYCLIC
     Route: 065
  3. VELCADE [Suspect]
     Indication: MULTIPLE MYELOMA
     Dosage: 2.47 MG, CYCLIC
     Route: 065
     Dates: start: 20110201

REACTIONS (4)
  - COLON CANCER [None]
  - CYTOMEGALOVIRUS INFECTION [None]
  - HYPERGLYCAEMIA [None]
  - ILEUS PARALYTIC [None]
